FAERS Safety Report 6827291-1 (Version None)
Quarter: 2010Q3

REPORT INFORMATION
  Report Type: 
  Country: None (occurrence: None)
  Receive Date: 20100709
  Receipt Date: 20100630
  Transmission Date: 20110219
  Serious: Yes (Other)
  Sender: FDA-Public Use
  Company Number: US-PERRIGO-10US009272

PATIENT
  Sex: Female
  Weight: 79.365 kg

DRUGS (4)
  1. IBUPROFEN 200MG 517 [Suspect]
     Indication: HEADACHE
     Dosage: 200 MG, SINGLE
     Route: 048
     Dates: start: 20100418, end: 20100418
  2. LEXAPRO [Concomitant]
     Indication: ASPERGER'S DISORDER
     Dosage: 15 MG, QD
     Route: 048
     Dates: start: 20060430
  3. FOCALIN [Concomitant]
     Indication: ASPERGER'S DISORDER
     Dosage: 20 MG, QD
     Route: 048
     Dates: start: 20060430
  4. LIQ ANTACID FSTACT RS ORIG LIQ 357 [Suspect]
     Indication: PRODUCT USED FOR UNKNOWN INDICATION
     Dosage: UNKNOWN
     Route: 065
     Dates: start: 20100418

REACTIONS (4)
  - EYELID OEDEMA [None]
  - HYPERSENSITIVITY [None]
  - PRURITUS [None]
  - RASH MACULAR [None]
